FAERS Safety Report 11252172 (Version 1)
Quarter: 2015Q3

REPORT INFORMATION
  Report Type: Spontaneous
  Country: US (occurrence: US)
  Receive Date: 20150708
  Receipt Date: 20150708
  Transmission Date: 20151125
  Serious: No
  Sender: FDA-Public Use
  Company Number: US-ELI_LILLY_AND_COMPANY-US201308008097

PATIENT
  Age: 43 Year
  Sex: Female

DRUGS (7)
  1. DECADRON [Concomitant]
     Active Substance: DEXAMETHASONE
  2. ALIMTA [Suspect]
     Active Substance: PEMETREXED DISODIUM
     Indication: LUNG CANCER METASTATIC
     Dosage: 500 MG/M2, UNK
     Route: 042
     Dates: start: 20130823
  3. IBUPROFEN. [Concomitant]
     Active Substance: IBUPROFEN
  4. OXYCONTIN [Concomitant]
     Active Substance: OXYCODONE HYDROCHLORIDE
  5. XANAX [Concomitant]
     Active Substance: ALPRAZOLAM
  6. FOLIC ACID. [Concomitant]
     Active Substance: FOLIC ACID
  7. ZOFRAN [Concomitant]
     Active Substance: ONDANSETRON HYDROCHLORIDE

REACTIONS (1)
  - Palpitations [Recovered/Resolved]

NARRATIVE: CASE EVENT DATE: 20130823
